FAERS Safety Report 5508600-2 (Version None)
Quarter: 2007Q4

REPORT INFORMATION
  Report Type: 
  Country: None (occurrence: None)
  Receive Date: 20071031
  Receipt Date: 20070724
  Transmission Date: 20080405
  Serious: No
  Sender: FDA-Public Use
  Company Number: 2007PV033182

PATIENT
  Age: 58 Year
  Sex: Female

DRUGS (6)
  1. SYMLIN [Suspect]
     Indication: TYPE 2 DIABETES MELLITUS
     Dosage: 20 MCG; TID; SC; 90 MCG;TID; SC; 60 MCG;TID; SC
     Route: 058
     Dates: start: 20010716, end: 20070719
  2. SYMLIN [Suspect]
     Indication: TYPE 2 DIABETES MELLITUS
     Dosage: 20 MCG; TID; SC; 90 MCG;TID; SC; 60 MCG;TID; SC
     Route: 058
     Dates: start: 20070719, end: 20070722
  3. SYMLIN [Suspect]
     Indication: TYPE 2 DIABETES MELLITUS
     Dosage: 20 MCG; TID; SC; 90 MCG;TID; SC; 60 MCG;TID; SC
     Route: 058
     Dates: start: 20070722
  4. NOVOLOG [Concomitant]
  5. NOVOLOG [Concomitant]
  6. NOVOLOG [Concomitant]

REACTIONS (2)
  - BLOOD GLUCOSE INCREASED [None]
  - NAUSEA [None]
